FAERS Safety Report 15179458 (Version 1)
Quarter: 2018Q3

REPORT INFORMATION
  Report Type: Spontaneous
  Country: FR (occurrence: FR)
  Receive Date: 20180723
  Receipt Date: 20180723
  Transmission Date: 20181010
  Serious: Yes (Hospitalization)
  Sender: FDA-Public Use
  Company Number: FR-CONCORDIA PHARMACEUTICALS INC.-E2B_00014309

PATIENT
  Age: 43 Year
  Sex: Male

DRUGS (8)
  1. HALDOL [Concomitant]
     Active Substance: HALOPERIDOL
     Indication: NEUROPSYCHIATRIC SYNDROME
     Route: 048
  2. PREDNISOLONE. [Suspect]
     Active Substance: PREDNISOLONE
     Indication: SINUSITIS
     Route: 048
     Dates: start: 20180406, end: 20180408
  3. AMOXICILLINE BIOGARAN 1 G, COMPRIME DISPERSIBLE [Suspect]
     Active Substance: AMOXICILLIN
     Indication: SINUSITIS
     Route: 048
     Dates: start: 20180406, end: 20180409
  4. DAFALGAN [Suspect]
     Active Substance: ACETAMINOPHEN
     Indication: PAIN
     Dosage: PEUT?ETRE JUSQU E 5 A 6 G PAR JOUR
     Route: 048
     Dates: start: 201803, end: 20180409
  5. SEROPLEX 10 MG, COMPRIME PELLICULE SECABLE [Concomitant]
     Active Substance: ESCITALOPRAM OXALATE
     Indication: NEUROPSYCHIATRIC SYMPTOMS
     Route: 048
  6. NOZINAN 100 MG, COMPRIME PELLICULE SECABLE [Concomitant]
     Indication: NEUROPSYCHIATRIC SYMPTOMS
     Route: 048
  7. BRONCHOKOD [Suspect]
     Active Substance: CARBOCYSTEINE
     Indication: SINUSITIS
     Dosage: 1 CUILLERE A SOUPE 3 FOIS PAR JOUR
     Route: 048
     Dates: start: 20180406, end: 20180409
  8. LEPTICUR [Concomitant]
     Active Substance: TROPATEPINE HYDROCHLORIDE
     Indication: PARKINSONISM
     Route: 048

REACTIONS (1)
  - Hepatitis [Recovered/Resolved]

NARRATIVE: CASE EVENT DATE: 20180409
